FAERS Safety Report 16628352 (Version 1)
Quarter: 2019Q3

REPORT INFORMATION
  Report Type: Spontaneous
  Country: AU (occurrence: AU)
  Receive Date: 20190724
  Receipt Date: 20190724
  Transmission Date: 20191004
  Serious: Yes (Other)
  Sender: FDA-Public Use
  Company Number: AU-BAXTER-2019BAX013861

PATIENT
  Age: 52 Year
  Sex: Male

DRUGS (1)
  1. ARTISS FROZEN [Suspect]
     Active Substance: FIBRINOGEN HUMAN\THROMBIN HUMAN
     Indication: TISSUE SEALING
     Route: 031
     Dates: start: 20190704, end: 20190704

REACTIONS (2)
  - Drug ineffective [Recovering/Resolving]
  - Post procedural discomfort [Recovering/Resolving]

NARRATIVE: CASE EVENT DATE: 201907
